FAERS Safety Report 4771667-3 (Version None)
Quarter: 2005Q3

REPORT INFORMATION
  Report Type: 
  Country: None (occurrence: None)
  Receive Date: 20050908
  Receipt Date: 20050824
  Transmission Date: 20060218
  Serious: Yes (Death, Life-Threatening, Other)
  Sender: FDA-Public Use
  Company Number: THYM-10554

PATIENT
  Age: 23 Year
  Sex: Male
  Weight: 86.3 kg

DRUGS (8)
  1. THYMOGLOBULIN [Suspect]
     Indication: PROPHYLAXIS AGAINST TRANSPLANT REJECTION
     Dosage: 0.5 MG/KG QD IV
     Route: 042
     Dates: start: 20050213, end: 20050213
  2. THYMOGLOBULIN [Suspect]
     Indication: PROPHYLAXIS AGAINST TRANSPLANT REJECTION
     Dosage: 2.5 MG/KG QD IV
     Route: 042
     Dates: start: 20050214, end: 20050214
  3. THYMOGLOBULIN [Suspect]
     Indication: PROPHYLAXIS AGAINST TRANSPLANT REJECTION
     Dosage: 3 MG/KG QD IV
     Route: 042
     Dates: start: 20050215, end: 20050215
  4. FLUDARABINE PHOSPHATE [Concomitant]
  5. BUSULFAN [Concomitant]
  6. CYCLOPHOSPHAMIDE [Concomitant]
  7. METHYLPREDNISOLONE [Concomitant]
  8. ORTHOCLONE OKT3 [Concomitant]

REACTIONS (10)
  - BACTERAEMIA [None]
  - BONE MARROW TRANSPLANT REJECTION [None]
  - CANDIDIASIS [None]
  - CRYPTOGENIC ORGANIZING PNEUMONIA [None]
  - CYSTITIS [None]
  - DISEASE PROGRESSION [None]
  - IDIOPATHIC PNEUMONIA SYNDROME [None]
  - MYELODYSPLASTIC SYNDROME [None]
  - NEUTROPENIA [None]
  - RESPIRATORY RATE INCREASED [None]
